FAERS Safety Report 9677618 (Version 3)
Quarter: 2014Q1

REPORT INFORMATION
  Report Type: Spontaneous
  Country: US (occurrence: US)
  Receive Date: 20131108
  Receipt Date: 20140214
  Transmission Date: 20141002
  Serious: Yes (Other)
  Sender: FDA-Public Use
  Company Number: US-JNJFOC-20131101163

PATIENT
  Age: 44 Year
  Sex: Male
  Weight: 96.07 kg

DRUGS (56)
  1. REMICADE [Suspect]
     Indication: ARTHRITIS
     Route: 042
     Dates: start: 20121130
  2. REMICADE [Suspect]
     Indication: ARTHRITIS
     Route: 042
     Dates: start: 20120813
  3. REMICADE [Suspect]
     Indication: ARTHRITIS
     Route: 042
     Dates: start: 20120618
  4. REMICADE [Suspect]
     Indication: ARTHRITIS
     Route: 042
     Dates: start: 20120423
  5. REMICADE [Suspect]
     Indication: ARTHRITIS
     Route: 042
     Dates: start: 20111229
  6. REMICADE [Suspect]
     Indication: ARTHRITIS
     Route: 042
     Dates: start: 20110912
  7. REMICADE [Suspect]
     Indication: ARTHRITIS
     Route: 042
     Dates: start: 20110321
  8. REMICADE [Suspect]
     Indication: ARTHRITIS
     Route: 042
     Dates: start: 20110124
  9. REMICADE [Suspect]
     Indication: ARTHRITIS
     Route: 042
     Dates: start: 20101004
  10. REMICADE [Suspect]
     Indication: ARTHRITIS
     Route: 042
     Dates: start: 20100809
  11. REMICADE [Suspect]
     Indication: ARTHRITIS
     Route: 042
     Dates: start: 20100614
  12. REMICADE [Suspect]
     Indication: ARTHRITIS
     Route: 042
     Dates: start: 20100420
  13. REMICADE [Suspect]
     Indication: ARTHRITIS
     Route: 042
     Dates: start: 20081106
  14. REMICADE [Suspect]
     Indication: ARTHRITIS
     Route: 042
     Dates: start: 20080522
  15. REMICADE [Suspect]
     Indication: ARTHRITIS
     Route: 042
     Dates: start: 20130128
  16. REMICADE [Suspect]
     Indication: ARTHRITIS
     Route: 042
     Dates: start: 20130325
  17. REMICADE [Suspect]
     Indication: ARTHRITIS
     Route: 042
     Dates: start: 20130520
  18. REMICADE [Suspect]
     Indication: ARTHRITIS
     Route: 042
     Dates: start: 20130714
  19. REMICADE [Suspect]
     Indication: ARTHRITIS
     Route: 042
     Dates: start: 20130909
  20. REMICADE [Suspect]
     Indication: ARTHRITIS
     Route: 042
     Dates: start: 20140102
  21. REMICADE [Suspect]
     Indication: ARTHRITIS
     Route: 042
     Dates: start: 20070212
  22. REMICADE [Suspect]
     Indication: ARTHRITIS
     Route: 042
     Dates: start: 201310
  23. REMICADE [Suspect]
     Indication: ARTHRITIS
     Route: 042
     Dates: start: 201002
  24. REMICADE [Suspect]
     Indication: ARTHRITIS
     Dosage: APPROXIMATELY TOTAL NUMBER OF INFUSIONS WERE 26
     Route: 042
     Dates: start: 20090629, end: 201310
  25. REMICADE [Suspect]
     Indication: COLITIS ULCERATIVE
     Route: 042
     Dates: start: 20130714
  26. REMICADE [Suspect]
     Indication: COLITIS ULCERATIVE
     Route: 042
     Dates: start: 20130325
  27. REMICADE [Suspect]
     Indication: COLITIS ULCERATIVE
     Route: 042
     Dates: start: 20130128
  28. REMICADE [Suspect]
     Indication: COLITIS ULCERATIVE
     Route: 042
     Dates: start: 20121130
  29. REMICADE [Suspect]
     Indication: COLITIS ULCERATIVE
     Route: 042
     Dates: start: 20120813
  30. REMICADE [Suspect]
     Indication: COLITIS ULCERATIVE
     Route: 042
     Dates: start: 20120618
  31. REMICADE [Suspect]
     Indication: COLITIS ULCERATIVE
     Route: 042
     Dates: start: 20120423
  32. REMICADE [Suspect]
     Indication: COLITIS ULCERATIVE
     Route: 042
     Dates: start: 20111229
  33. REMICADE [Suspect]
     Indication: COLITIS ULCERATIVE
     Route: 042
     Dates: start: 20110912
  34. REMICADE [Suspect]
     Indication: COLITIS ULCERATIVE
     Route: 042
     Dates: start: 20110321
  35. REMICADE [Suspect]
     Indication: COLITIS ULCERATIVE
     Route: 042
     Dates: start: 20110124
  36. REMICADE [Suspect]
     Indication: COLITIS ULCERATIVE
     Route: 042
     Dates: start: 20101004
  37. REMICADE [Suspect]
     Indication: COLITIS ULCERATIVE
     Route: 042
     Dates: start: 20100809
  38. REMICADE [Suspect]
     Indication: COLITIS ULCERATIVE
     Route: 042
     Dates: start: 20100614
  39. REMICADE [Suspect]
     Indication: COLITIS ULCERATIVE
     Route: 042
     Dates: start: 20100420
  40. REMICADE [Suspect]
     Indication: COLITIS ULCERATIVE
     Route: 042
     Dates: start: 20081106
  41. REMICADE [Suspect]
     Indication: COLITIS ULCERATIVE
     Route: 042
     Dates: start: 20080522
  42. REMICADE [Suspect]
     Indication: COLITIS ULCERATIVE
     Route: 042
     Dates: start: 20140102
  43. REMICADE [Suspect]
     Indication: COLITIS ULCERATIVE
     Route: 042
     Dates: start: 20070212
  44. REMICADE [Suspect]
     Indication: COLITIS ULCERATIVE
     Dosage: APPROXIMATELY TOTAL NUMBER OF INFUSIONS WERE 26
     Route: 042
     Dates: start: 20090629, end: 201310
  45. REMICADE [Suspect]
     Indication: COLITIS ULCERATIVE
     Route: 042
     Dates: start: 201310
  46. REMICADE [Suspect]
     Indication: COLITIS ULCERATIVE
     Route: 042
     Dates: start: 201002
  47. REMICADE [Suspect]
     Indication: COLITIS ULCERATIVE
     Route: 042
     Dates: start: 20130520
  48. REMICADE [Suspect]
     Indication: COLITIS ULCERATIVE
     Route: 042
     Dates: start: 20130909
  49. PREDNISONE [Concomitant]
     Route: 048
  50. LIALDA [Concomitant]
     Indication: COLITIS ULCERATIVE
     Route: 065
     Dates: start: 20100301
  51. LIALDA [Concomitant]
     Indication: COLITIS ULCERATIVE
     Route: 065
  52. CALCIUM [Concomitant]
     Route: 065
  53. ZYRTEC [Concomitant]
     Route: 065
  54. MULTIVITAMINS [Concomitant]
     Route: 065
  55. 6 MERCAPTOPURINE [Concomitant]
     Indication: COLITIS ULCERATIVE
     Route: 065
     Dates: start: 20060427, end: 201309
  56. APAP [Concomitant]
     Indication: PREMEDICATION
     Route: 065

REACTIONS (6)
  - Testis cancer [Not Recovered/Not Resolved]
  - Thrombosis in device [Unknown]
  - Osteopenia [Unknown]
  - Colitis ulcerative [Recovering/Resolving]
  - Polyp [Unknown]
  - Retroperitoneal lymphadenopathy [Recovering/Resolving]
